FAERS Safety Report 25210276 (Version 1)
Quarter: 2025Q2

REPORT INFORMATION
  Report Type: Report from Study
  Country: CN (occurrence: CN)
  Receive Date: 20250417
  Receipt Date: 20250417
  Transmission Date: 20250716
  Serious: Yes (Death, Life-Threatening, Hospitalization, Other)
  Sender: JOHNSON AND JOHNSON
  Company Number: CN-JNJFOC-20250412806

PATIENT

DRUGS (7)
  1. TECLISTAMAB [Suspect]
     Active Substance: TECLISTAMAB
     Indication: Product used for unknown indication
  2. TALQUETAMAB [Suspect]
     Active Substance: TALQUETAMAB
     Indication: Product used for unknown indication
     Route: 065
  3. BLINATUMOMAB [Concomitant]
     Active Substance: BLINATUMOMAB
  4. EPCORITAMAB [Concomitant]
     Active Substance: EPCORITAMAB
  5. GLOFITAMAB [Concomitant]
     Active Substance: GLOFITAMAB
  6. MOSUNETUZUMAB [Concomitant]
     Active Substance: MOSUNETUZUMAB
  7. TEBENTAFUSP [Concomitant]
     Active Substance: TEBENTAFUSP

REACTIONS (51)
  - Cytokine release syndrome [Fatal]
  - Immune effector cell-associated neurotoxicity syndrome [Fatal]
  - Sepsis [Fatal]
  - Infection [Fatal]
  - Second primary malignancy [Fatal]
  - Pyrexia [Fatal]
  - Acute lymphocytic leukaemia [Fatal]
  - Off label use [Fatal]
  - Neurotoxicity [Fatal]
  - Headache [Fatal]
  - Neutropenia [Fatal]
  - Pneumonia [Fatal]
  - Infusion related reaction [Fatal]
  - Febrile neutropenia [Fatal]
  - Drug ineffective [Fatal]
  - Rash [Fatal]
  - Hypotension [Fatal]
  - Tremor [Fatal]
  - Therapy non-responder [Fatal]
  - COVID-19 [Fatal]
  - Thrombocytopenia [Fatal]
  - Confusional state [Fatal]
  - Seizure [Fatal]
  - Acute lymphocytic leukaemia recurrent [Fatal]
  - Nausea [Fatal]
  - Fatigue [Fatal]
  - Anaemia [Fatal]
  - Leukaemic infiltration extramedullary [Fatal]
  - Wrong technique in product usage process [Fatal]
  - Platelet count decreased [Fatal]
  - Chills [Fatal]
  - Diarrhoea [Fatal]
  - Vomiting [Fatal]
  - Nervous system disorder [Fatal]
  - Alanine aminotransferase increased [Fatal]
  - Dyspnoea [Fatal]
  - Non-Hodgkin^s lymphoma [Unknown]
  - Hepatobiliary neoplasm [Unknown]
  - Neoplasm [Unknown]
  - Gastrointestinal neoplasm [Unknown]
  - Respiratory tract neoplasm [Unknown]
  - Urinary tract neoplasm [Unknown]
  - Soft tissue neoplasm [Unknown]
  - Neoplasm skin [Unknown]
  - Hodgkin^s disease [Unknown]
  - T-cell chronic lymphocytic leukaemia [Unknown]
  - Breast neoplasm [Unknown]
  - Myeloid leukaemia [Unknown]
  - Accidental exposure to product [Unknown]
  - Product storage error [Unknown]
  - Genitourinary tract neoplasm [Unknown]
